FAERS Safety Report 4928556-0 (Version None)
Quarter: 2006Q1

REPORT INFORMATION
  Report Type: 
  Country: None (occurrence: None)
  Receive Date: 20060223
  Receipt Date: 20060201
  Transmission Date: 20060701
  Serious: Yes (Other)
  Sender: FDA-Public Use
  Company Number: US200602000545

PATIENT
  Age: 48 Year
  Sex: Female

DRUGS (2)
  1. FORTEO [Suspect]
     Indication: OSTEOPOROSIS
     Dates: start: 20040101, end: 20051201
  2. FORTEO [Concomitant]

REACTIONS (2)
  - NEPHROLITHIASIS [None]
  - PANCREATITIS [None]
